FAERS Safety Report 8746120 (Version 2)
Quarter: 2012Q4

REPORT INFORMATION
  Report Type: 
  Country: CA (occurrence: CA)
  Receive Date: 20120827
  Receipt Date: 20121113
  Transmission Date: 20130627
  Serious: Yes (Other)
  Sender: FDA-Public Use
  Company Number: PHHY2012CA059713

PATIENT
  Age: 83 Year
  Sex: Male

DRUGS (2)
  1. EXELON PATCH [Suspect]
     Indication: DEMENTIA ALZHEIMER^S TYPE
     Dosage: 9.5 mg/24 hours
     Route: 062
     Dates: start: 20120524
  2. EXELON PATCH [Suspect]
     Route: 062

REACTIONS (5)
  - Cellulitis [Unknown]
  - Skin exfoliation [Unknown]
  - Animal bite [Unknown]
  - Nightmare [Unknown]
  - Gastric disorder [Unknown]
